FAERS Safety Report 15664549 (Version 1)
Quarter: 2018Q4

REPORT INFORMATION
  Report Type: Spontaneous
  Country: US (occurrence: US)
  Receive Date: 20181128
  Receipt Date: 20181128
  Transmission Date: 20190205
  Serious: No
  Sender: FDA-Public Use
  Company Number: US-UNITED THERAPEUTICS-UNT-2018-019408

PATIENT
  Sex: Female
  Weight: 78.91 kg

DRUGS (2)
  1. REMODULIN [Suspect]
     Active Substance: TREPROSTINIL
     Indication: PULMONARY ARTERIAL HYPERTENSION
     Dosage: 0.0598 ?G/KG, CONTINUING
     Route: 058
     Dates: start: 20170405
  2. LETAIRIS [Concomitant]
     Active Substance: AMBRISENTAN
     Indication: PRODUCT USED FOR UNKNOWN INDICATION
     Route: 065

REACTIONS (5)
  - Device infusion issue [Unknown]
  - Infusion site pain [Unknown]
  - Accidental overdose [Unknown]
  - Diarrhoea [Unknown]
  - Infusion site swelling [Recovering/Resolving]
